FAERS Safety Report 7789651-4 (Version None)
Quarter: 2011Q3

REPORT INFORMATION
  Report Type: 
  Country: None (occurrence: None)
  Receive Date: 20110930
  Receipt Date: 20110922
  Transmission Date: 20111222
  Serious: Yes (Other)
  Sender: FDA-Public Use
  Company Number: US-NAPPMUNDI-USA-2011-0075027

PATIENT
  Sex: Female

DRUGS (1)
  1. OXYCONTIN [Suspect]
     Indication: PAIN
     Dosage: 80 MG, UNK

REACTIONS (4)
  - DRUG WITHDRAWAL SYNDROME [None]
  - BLOOD PRESSURE INCREASED [None]
  - CARDIAC VENTRICULAR DISORDER [None]
  - CARDIAC DISORDER [None]
